FAERS Safety Report 6441869-9 (Version None)
Quarter: 2009Q4

REPORT INFORMATION
  Report Type: 
  Country: None (occurrence: None)
  Receive Date: 20091116
  Receipt Date: 20091106
  Transmission Date: 20100525
  Serious: Yes (Hospitalization)
  Sender: FDA-Public Use
  Company Number: US-JNJFOC-20091102007

PATIENT
  Sex: Female
  Weight: 32.93 kg

DRUGS (19)
  1. INFLIXIMAB [Suspect]
     Indication: INFLAMMATORY BOWEL DISEASE
     Route: 042
  2. MESALAZINE [Concomitant]
     Indication: INFLAMMATORY BOWEL DISEASE
  3. IRON [Concomitant]
  4. ASPIRIN [Concomitant]
  5. AUGMENTIN [Concomitant]
  6. PERCOCET [Concomitant]
  7. ATIVAN [Concomitant]
  8. OMEGA 3 FATTY ACIDS [Concomitant]
  9. MULTI-VITAMINS [Concomitant]
  10. TYLENOL (CAPLET) [Concomitant]
  11. KENALOG [Concomitant]
  12. FLUCONAZOLE [Concomitant]
  13. ACETAMINOPHEN W/ CODEINE [Concomitant]
  14. NYSTATIN [Concomitant]
  15. ZINC SULFATE [Concomitant]
  16. KEFLEX [Concomitant]
  17. KETOCONAZOLE [Concomitant]
  18. HUMIRA [Concomitant]
  19. ANTIBIOTICS [Concomitant]
     Indication: INFLAMMATORY BOWEL DISEASE

REACTIONS (2)
  - DEVICE RELATED INFECTION [None]
  - SEPTIC SHOCK [None]
